FAERS Safety Report 25829150 (Version 1)
Quarter: 2025Q3

REPORT INFORMATION
  Report Type: Spontaneous
  Country: JP (occurrence: JP)
  Receive Date: 20250922
  Receipt Date: 20250922
  Transmission Date: 20251021
  Serious: Yes (Hospitalization)
  Sender: BOEHRINGER INGELHEIM
  Company Number: JP-NBI-2025-BI-096401

PATIENT
  Age: 76 Year
  Sex: Male
  Weight: 60 kg

DRUGS (17)
  1. LINAGLIPTIN [Suspect]
     Active Substance: LINAGLIPTIN
     Indication: Diabetes mellitus
  2. MICARDIS [Suspect]
     Active Substance: TELMISARTAN
     Indication: Product used for unknown indication
  3. JARDIANCE [Suspect]
     Active Substance: EMPAGLIFLOZIN
     Indication: Diabetes mellitus
     Dates: start: 202304, end: 202503
  4. FUROSEMIDE [Concomitant]
     Active Substance: FUROSEMIDE
     Dates: start: 202210, end: 202503
  5. FUROSEMIDE [Concomitant]
     Active Substance: FUROSEMIDE
  6. ATORVASTATIN [Concomitant]
     Active Substance: ATORVASTATIN
  7. AMLODIPINE BESYLATE [Concomitant]
     Active Substance: AMLODIPINE BESYLATE
  8. HYDROCHLOROTHIAZIDE [Concomitant]
     Active Substance: HYDROCHLOROTHIAZIDE
  9. SPIRONOLACTONE [Concomitant]
     Active Substance: SPIRONOLACTONE
  10. GLIMEPIRIDE [Concomitant]
     Active Substance: GLIMEPIRIDE
     Dates: start: 202308, end: 202411
  11. GLIMEPIRIDE [Concomitant]
     Active Substance: GLIMEPIRIDE
     Dates: start: 202411, end: 202503
  12. DAPRODUSTAT [Concomitant]
     Active Substance: DAPRODUSTAT
     Dates: start: 202210, end: 202307
  13. DAPRODUSTAT [Concomitant]
     Active Substance: DAPRODUSTAT
     Dates: start: 202307, end: 202406
  14. DAPRODUSTAT [Concomitant]
     Active Substance: DAPRODUSTAT
     Dates: start: 202406, end: 202408
  15. DAPRODUSTAT [Concomitant]
     Active Substance: DAPRODUSTAT
     Dates: start: 202408, end: 202409
  16. DAPRODUSTAT [Concomitant]
     Active Substance: DAPRODUSTAT
     Dates: start: 202409, end: 202505
  17. DAPRODUSTAT [Concomitant]
     Active Substance: DAPRODUSTAT

REACTIONS (2)
  - Cerebral infarction [Unknown]
  - Dialysis [Unknown]

NARRATIVE: CASE EVENT DATE: 20230701
